FAERS Safety Report 9523825 (Version 2)
Quarter: 2013Q4

REPORT INFORMATION
  Report Type: Spontaneous
  Country: US (occurrence: US)
  Receive Date: 20130916
  Receipt Date: 20131007
  Transmission Date: 20140711
  Serious: No
  Sender: FDA-Public Use
  Company Number: US-B.I. PHARMACEUTICALS,INC./RIDGEFIELD-2013-BI-27907BP

PATIENT
  Age: 66 Year
  Sex: Male
  Weight: 93 kg

DRUGS (12)
  1. COMBIVENT [Suspect]
     Indication: CHRONIC OBSTRUCTIVE PULMONARY DISEASE
     Dosage: STRENGTH: 20 MCG / 100 MCG; DAILY DOSE: 80MCG/400MCG
     Route: 055
     Dates: start: 201307
  2. COMBIVENT [Suspect]
     Dosage: STRENGTH 20MCG/100MCG,DAILY DOSE 80MCG/400 MCG
     Route: 055
     Dates: start: 201308
  3. APRAZOLAM [Concomitant]
     Indication: ANXIETY
     Dosage: 0.25 MG
     Route: 048
     Dates: start: 201308
  4. AMLODIPINE [Concomitant]
     Indication: ATRIAL FIBRILLATION
     Dosage: 5 MG
     Route: 048
     Dates: start: 2012
  5. BUDESONIDE [Concomitant]
     Indication: CHRONIC OBSTRUCTIVE PULMONARY DISEASE
     Dosage: STRENGHT: INHALATION SPRAY.
     Route: 055
     Dates: start: 2008
  6. COUMADIN [Concomitant]
     Indication: ATRIAL FIBRILLATION
     Dosage: 1 MG
     Route: 048
     Dates: start: 2012
  7. DIOVAN/HCT [Concomitant]
     Indication: HYPERTENSION
     Dosage: 160MG/12.5 MG
     Route: 048
     Dates: start: 2000
  8. FLUTICASONE [Concomitant]
     Indication: MULTIPLE ALLERGIES
     Dates: start: 2011
  9. FORADIL [Concomitant]
     Indication: CHRONIC OBSTRUCTIVE PULMONARY DISEASE
     Dosage: 12 MCG
     Route: 055
     Dates: start: 2008
  10. FUROSEMIDE [Concomitant]
     Indication: ATRIAL FIBRILLATION
     Dosage: 20 MG
     Route: 048
     Dates: start: 2012
  11. IPRATROPIUM [Concomitant]
     Indication: CHRONIC OBSTRUCTIVE PULMONARY DISEASE
     Dates: start: 2012
  12. MULTAQ [Concomitant]
     Indication: ATRIAL FIBRILLATION
     Dosage: 800 MG
     Route: 048
     Dates: start: 2012

REACTIONS (3)
  - Overdose [Not Recovered/Not Resolved]
  - Intentional overdose [Unknown]
  - Drug ineffective [Not Recovered/Not Resolved]
